FAERS Safety Report 12074314 (Version 1)
Quarter: 2016Q1

REPORT INFORMATION
  Report Type: Other
  Country: US (occurrence: US)
  Receive Date: 20160212
  Receipt Date: 20160212
  Transmission Date: 20160526
  Serious: Yes (Other)
  Sender: FDA-Public Use
  Company Number: US-COL_22006_2016

PATIENT
  Age: 60 Year
  Sex: Female

DRUGS (2)
  1. BLOOD PRESSURE MEDICATION [Concomitant]
     Active Substance: UNSPECIFIED INGREDIENT
     Dosage: NI/NI/
  2. COLGATE TOTAL WHITENING [Suspect]
     Active Substance: SILICON DIOXIDE\SODIUM FLUORIDE\TRICLOSAN
     Indication: DENTAL DISORDER PROPHYLAXIS
     Dosage: COVERED THE WHOLE HEAD OF THE TOOTHBRUSH/ THREE TIMES A DAY/
     Route: 048
     Dates: end: 2011

REACTIONS (3)
  - Oral discomfort [Not Recovered/Not Resolved]
  - Salivary gland cancer [None]
  - Neoplasm malignant [Recovered/Resolved]

NARRATIVE: CASE EVENT DATE: 201011
